FAERS Safety Report 8382056-7 (Version None)
Quarter: 2012Q2

REPORT INFORMATION
  Report Type: 
  Country: None (occurrence: None)
  Receive Date: 20120524
  Receipt Date: 20120508
  Transmission Date: 20120825
  Serious: Yes (Hospitalization)
  Sender: FDA-Public Use
  Company Number: CA-JNJFOC-20120509786

PATIENT
  Sex: Male
  Weight: 225 kg

DRUGS (1)
  1. REMICADE [Suspect]
     Indication: ANKYLOSING SPONDYLITIS
     Dosage: FIRST DOSE
     Route: 042
     Dates: start: 20120425

REACTIONS (3)
  - ARTHRALGIA [None]
  - SENSORY LOSS [None]
  - SOMNOLENCE [None]
